FAERS Safety Report 7529889-4 (Version None)
Quarter: 2011Q2

REPORT INFORMATION
  Report Type: 
  Country: None (occurrence: None)
  Receive Date: 20110607
  Receipt Date: 20110522
  Transmission Date: 20111010
  Serious: No
  Sender: FDA-Public Use
  Company Number: US-B.I. PHARMACEUTICALS,INC./RIDGEFIELD-2011-BP-13720BP

PATIENT
  Age: 66 Year
  Sex: Female

DRUGS (4)
  1. ZANTAC 150 [Suspect]
     Indication: DYSPEPSIA
     Route: 048
     Dates: end: 20110518
  2. ATENOLOL [Concomitant]
     Indication: HYPERTENSION
  3. FEMHRT [Concomitant]
     Indication: MENOPAUSE
  4. NORVASC [Concomitant]
     Indication: HYPERTENSION

REACTIONS (4)
  - DYSPEPSIA [None]
  - FATIGUE [None]
  - DIZZINESS [None]
  - BLOOD PRESSURE INCREASED [None]
